FAERS Safety Report 18345966 (Version 2)
Quarter: 2020Q4

REPORT INFORMATION
  Report Type: Report from Study
  Country: None (occurrence: US)
  Receive Date: 20201005
  Receipt Date: 20201026
  Transmission Date: 20210114
  Serious: Yes (Hospitalization)
  Sender: FDA-Public Use
  Company Number: US-ABBVIE-20K-163-3593235-00

PATIENT
  Age: 70 Year
  Sex: Male

DRUGS (2)
  1. IMBRUVICA [Suspect]
     Active Substance: IBRUTINIB
     Indication: CHRONIC LYMPHOCYTIC LEUKAEMIA
     Route: 048
  2. IMBRUVICA [Suspect]
     Active Substance: IBRUTINIB
     Route: 048

REACTIONS (10)
  - Skin irritation [Recovering/Resolving]
  - Musculoskeletal stiffness [Unknown]
  - Dry skin [Recovering/Resolving]
  - Back pain [Unknown]
  - Blood pressure abnormal [Unknown]
  - Rash [Recovering/Resolving]
  - Skin exfoliation [Recovering/Resolving]
  - Cellulitis [Recovered/Resolved]
  - Knee operation [Recovered/Resolved]
  - Spinal operation [Recovering/Resolving]

NARRATIVE: CASE EVENT DATE: 2020
